FAERS Safety Report 4551110-X (Version None)
Quarter: 2005Q1

REPORT INFORMATION
  Report Type: 
  Country: None (occurrence: None)
  Receive Date: 20050107
  Receipt Date: 20041229
  Transmission Date: 20050727
  Serious: Yes (Death, Hospitalization)
  Sender: FDA-Public Use
  Company Number: US-2004-037272

PATIENT
  Age: 36 Year
  Sex: Female

DRUGS (1)
  1. BETASERON [Suspect]
     Indication: MULTIPLE SCLEROSIS
     Dosage: 8 MIU, EVERY 2D, SUBCUTANEOUS
     Route: 058
     Dates: start: 20031002, end: 20031124

REACTIONS (7)
  - ASTHMA [None]
  - CONDITION AGGRAVATED [None]
  - HAEMATOTOXICITY [None]
  - INFLUENZA LIKE ILLNESS [None]
  - MULTIPLE SCLEROSIS [None]
  - MYOCARDIAL INFARCTION [None]
  - RESPIRATORY FAILURE [None]
